FAERS Safety Report 4396177-7 (Version None)
Quarter: 2004Q2

REPORT INFORMATION
  Report Type: 
  Country: None (occurrence: None)
  Receive Date: 20040621
  Receipt Date: 20031121
  Transmission Date: 20050107
  Serious: Yes (Death, Other)
  Sender: FDA-Public Use
  Company Number: USA-2003-0010977

PATIENT
  Age: 19 Year
  Sex: Male
  Weight: 76.2 kg

DRUGS (11)
  1. OXYCONTIN [Suspect]
  2. HYDROCODONE BITARTRATE [Suspect]
  3. ADDERALL 10 [Suspect]
     Indication: ATTENTION DEFICIT/HYPERACTIVITY DISORDER
  4. PROZAC [Suspect]
     Indication: DEPRESSION
  5. COCAINE (COCAINE) [Suspect]
  6. TRAZODONE HCL [Suspect]
  7. NEFAZODONE HCL [Suspect]
  8. CAFFEINE (CAFFEINE) [Suspect]
  9. NICOTINE [Suspect]
  10. OXYMORPHONE HYDROCHLORIDE [Suspect]
  11. XANAX [Suspect]
     Indication: DEPRESSION

REACTIONS (5)
  - ACCIDENTAL OVERDOSE [None]
  - DRUG ABUSER [None]
  - DYSARTHRIA [None]
  - MULTIPLE DRUG OVERDOSE [None]
  - PSYCHOMOTOR HYPERACTIVITY [None]
